FAERS Safety Report 10143940 (Version 2)
Quarter: 2014Q2

REPORT INFORMATION
  Report Type: Spontaneous
  Country: KR (occurrence: KR)
  Receive Date: 20140430
  Receipt Date: 20140430
  Transmission Date: 20141212
  Serious: Yes (Other)
  Sender: FDA-Public Use
  Company Number: KR-009507513-1404KOR006884

PATIENT
  Age: 87 Year
  Sex: Female

DRUGS (4)
  1. REMERON [Suspect]
     Indication: INSOMNIA
     Route: 048
  2. REMERON [Suspect]
     Dosage: UNK
     Dates: start: 201404, end: 20140409
  3. REMERON SOLTAB [Suspect]
     Indication: INSOMNIA
     Route: 048
  4. ATIVAN [Concomitant]
     Indication: INSOMNIA

REACTIONS (10)
  - Brain tumour operation [Unknown]
  - Brain neoplasm [Recovered/Resolved]
  - Hyperthyroidism [Unknown]
  - Visual impairment [Recovered/Resolved]
  - Insomnia [Unknown]
  - Vision blurred [Recovered/Resolved]
  - Metamorphopsia [Recovered/Resolved]
  - Vision blurred [Recovered/Resolved]
  - Off label use [Unknown]
  - Off label use [Unknown]
